FAERS Safety Report 7017752-7 (Version None)
Quarter: 2010Q3

REPORT INFORMATION
  Report Type: 
  Country: None (occurrence: None)
  Receive Date: 20100909
  Receipt Date: 20100616
  Transmission Date: 20110219
  Serious: No
  Sender: FDA-Public Use
  Company Number: 2010SP034080

PATIENT
  Age: 22 Year
  Sex: Female

DRUGS (1)
  1. SAPHRIS [Suspect]
     Indication: PRODUCT USED FOR UNKNOWN INDICATION
     Dosage: 5 MG;BID;PO

REACTIONS (3)
  - APHTHOUS STOMATITIS [None]
  - HYPOAESTHESIA ORAL [None]
  - INCORRECT ROUTE OF DRUG ADMINISTRATION [None]
